FAERS Safety Report 8024967-8 (Version None)
Quarter: 2012Q1

REPORT INFORMATION
  Report Type: 
  Country: None (occurrence: None)
  Receive Date: 20120103
  Receipt Date: 20111222
  Transmission Date: 20120608
  Serious: Yes (Hospitalization)
  Sender: FDA-Public Use
  Company Number: AUR-APL-2011-01235

PATIENT
  Age: 61 Year
  Sex: Female

DRUGS (6)
  1. AMLODIPINE BESYLATE AND OLMESARTAN MEDOXOMIL [Suspect]
     Indication: HYPERTENSION
     Dosage: 40/10 MG (1 IN 1 D), ORAL
     Route: 048
     Dates: start: 20100801, end: 20101201
  2. PHENOBARBITAL TAB [Concomitant]
  3. RAMIPRIL [Suspect]
     Indication: HYPERTENSION
     Dosage: (10 MG, 1 D), ORAL
     Route: 048
     Dates: start: 20100801
  4. PHENYTOIN [Concomitant]
  5. AMLODIPINE [Suspect]
     Indication: HYPERTENSION
     Dosage: (5 MG, 1 D), ORAL
     Route: 048
     Dates: start: 20100801, end: 20101201
  6. MANIDIPINE (MANIDIPINE) [Suspect]
     Indication: HYPERTENSION
     Dosage: (10 MG, 1 D), ORAL
     Route: 048

REACTIONS (8)
  - HYPERAEMIA [None]
  - LIMB OPERATION [None]
  - TREATMENT NONCOMPLIANCE [None]
  - PROCEDURAL PAIN [None]
  - DRUG INEFFECTIVE [None]
  - BLOOD PRESSURE SYSTOLIC INCREASED [None]
  - PAIN IN EXTREMITY [None]
  - OEDEMA PERIPHERAL [None]
